FAERS Safety Report 15189993 (Version 5)
Quarter: 2019Q1

REPORT INFORMATION
  Report Type: Spontaneous
  Country: US (occurrence: US)
  Receive Date: 20180724
  Receipt Date: 20190315
  Transmission Date: 20190417
  Serious: Yes (Hospitalization)
  Sender: FDA-Public Use
  Company Number: US-PFIZER INC-2018296028

PATIENT
  Age: 72 Year
  Sex: Female
  Weight: 50 kg

DRUGS (1)
  1. LYRICA [Suspect]
     Active Substance: PREGABALIN
     Dosage: 150 MG, 2X/DAY

REACTIONS (13)
  - Asthenia [Unknown]
  - Pain [Unknown]
  - Vomiting [Unknown]
  - Feeding disorder [Unknown]
  - Parosmia [Unknown]
  - Malaise [Unknown]
  - Burning sensation [Unknown]
  - Abdominal discomfort [Unknown]
  - Diarrhoea [Unknown]
  - Dysstasia [Unknown]
  - Feeling abnormal [Unknown]
  - Sensory disturbance [Unknown]
  - Withdrawal syndrome [Unknown]

NARRATIVE: CASE EVENT DATE: 201807
